FAERS Safety Report 7162813-5 (Version None)
Quarter: 2010Q4

REPORT INFORMATION
  Report Type: 
  Country: None (occurrence: None)
  Receive Date: 20101215
  Receipt Date: 20091218
  Transmission Date: 20110411
  Serious: Yes (Hospitalization)
  Sender: FDA-Public Use
  Company Number: FI-PFIZER INC-2009306496

PATIENT
  Age: 55 Year
  Sex: Male

DRUGS (3)
  1. CELEBRA [Suspect]
     Indication: ANKYLOSING SPONDYLITIS
     Dosage: 200 MG, 2X/DAY
     Route: 048
     Dates: start: 20091112, end: 20091203
  2. ZANTAC [Concomitant]
     Indication: PROPHYLAXIS
     Dosage: UNK
     Dates: start: 20091112
  3. SOMAC [Concomitant]
     Indication: PROPHYLAXIS
     Dosage: UNK
     Dates: start: 20091112

REACTIONS (3)
  - CONSTIPATION [None]
  - PULMONARY EMBOLISM [None]
  - VENOUS THROMBOSIS LIMB [None]
